FAERS Safety Report 17267927 (Version 1)
Quarter: 2020Q1

REPORT INFORMATION
  Report Type: Spontaneous
  Country: US (occurrence: US)
  Receive Date: 20191220
  Receipt Date: 20191220
  Transmission Date: 20200409
  Serious: Yes (Death)
  Sender: FDA-Public Use
  Company Number: None

PATIENT
  Age: 82 Year
  Sex: Female
  Weight: 54.43 kg

DRUGS (6)
  1. SERTRALINE [Concomitant]
     Active Substance: SERTRALINE HYDROCHLORIDE
  2. ASA [Concomitant]
     Active Substance: ASPIRIN
  3. AMIODARONE [Suspect]
     Active Substance: AMIODARONE
     Indication: PRODUCT USED FOR UNKNOWN INDICATION
     Dosage: ?          QUANTITY:1 DF DOSAGE FORM;?
     Route: 048
     Dates: start: 20190617, end: 20191023
  4. SIMVASTATIN. [Concomitant]
     Active Substance: SIMVASTATIN
  5. ISOSORBIDE. [Concomitant]
     Active Substance: ISOSORBIDE
  6. CILOSTAZOL. [Concomitant]
     Active Substance: CILOSTAZOL

REACTIONS (10)
  - Dyspnoea exertional [None]
  - Hypoxia [None]
  - Pulmonary oedema [None]
  - Toxicity to various agents [None]
  - Asthenia [None]
  - Nausea [None]
  - Fall [None]
  - Hypothyroidism [None]
  - Vomiting [None]
  - Diarrhoea [None]

NARRATIVE: CASE EVENT DATE: 20190926
